FAERS Safety Report 8927808 (Version 1)
Quarter: 2012Q4

REPORT INFORMATION
  Report Type: 
  Country: ES (occurrence: ES)
  Receive Date: 20121127
  Receipt Date: 20121127
  Transmission Date: 20130627
  Serious: Yes (Hospitalization)
  Sender: FDA-Public Use
  Company Number: ES-JNJFOC-20121110896

PATIENT
  Sex: Female

DRUGS (2)
  1. DUROGESIC [Suspect]
     Indication: BACK PAIN
     Route: 062
     Dates: start: 20120605, end: 20120613
  2. SEVREDOL [Suspect]
     Indication: BACK PAIN
     Route: 048
     Dates: start: 20120605, end: 20120613

REACTIONS (2)
  - Constipation [Recovered/Resolved]
  - Intestinal obstruction [Recovered/Resolved]
